FAERS Safety Report 14456610 (Version 2)
Quarter: 2018Q2

REPORT INFORMATION
  Report Type: Other
  Country: CA (occurrence: CA)
  Receive Date: 20180130
  Receipt Date: 20180422
  Transmission Date: 20180711
  Serious: Yes (Hospitalization, Other)
  Sender: FDA-Public Use
  Company Number: CA-APOTEX-2018AP005813

PATIENT
  Age: 75 Year
  Sex: Female

DRUGS (1)
  1. SALBUTAMOL [Suspect]
     Active Substance: ALBUTEROL
     Indication: PRODUCT USED FOR UNKNOWN INDICATION
     Dosage: UNK
     Route: 065

REACTIONS (6)
  - Asthma [Unknown]
  - Immunosuppression [Unknown]
  - Superinfection [Unknown]
  - Bronchospasm [Unknown]
  - Dyspnoea [Unknown]
  - Rheumatoid arthritis [Unknown]
